FAERS Safety Report 25527447 (Version 1)
Quarter: 2025Q3

REPORT INFORMATION
  Report Type: Spontaneous
  Country: TR (occurrence: TR)
  Receive Date: 20250708
  Receipt Date: 20250708
  Transmission Date: 20251020
  Serious: Yes (Hospitalization, Other)
  Sender: NOVO NORDISK
  Company Number: TR-NOVOPROD-1468740

PATIENT
  Age: 784 Month
  Sex: Female
  Weight: 80 kg

DRUGS (4)
  1. METFORMIN HYDROCHLORIDE [Concomitant]
     Active Substance: METFORMIN HYDROCHLORIDE
  2. ASPIRIN [Concomitant]
     Active Substance: ASPIRIN
  3. RYZODEG 70/30 [Suspect]
     Active Substance: INSULIN ASPART\INSULIN DEGLUDEC
     Indication: Product used for unknown indication
  4. AMLODIS [Concomitant]

REACTIONS (3)
  - Leg amputation [Not Recovered/Not Resolved]
  - Coronary artery occlusion [Recovered/Resolved]
  - Finger amputation [Not Recovered/Not Resolved]
